FAERS Safety Report 21472476 (Version 1)
Quarter: 2022Q4

REPORT INFORMATION
  Report Type: Spontaneous
  Country: DE (occurrence: DE)
  Receive Date: 20221018
  Receipt Date: 20221018
  Transmission Date: 20230113
  Serious: Yes (Other)
  Sender: FDA-Public Use
  Company Number: DE-BAYER-2022A138287

PATIENT
  Sex: Female

DRUGS (1)
  1. BETAFERON [Suspect]
     Active Substance: INTERFERON BETA-1B
     Dosage: UNK
     Dates: start: 2020

REACTIONS (11)
  - Cystoid macular oedema [None]
  - Uveitis [None]
  - Retinal degeneration [None]
  - Retinopathy hypertensive [None]
  - Ocular vasculitis [None]
  - Cataract [None]
  - Vitritis [None]
  - Retinal haemorrhage [None]
  - Macular hole [None]
  - Vitreoretinal traction syndrome [None]
  - Posterior capsule opacification [None]

NARRATIVE: CASE EVENT DATE: 20220722
